FAERS Safety Report 25321305 (Version 1)
Quarter: 2025Q2

REPORT INFORMATION
  Report Type: Report from Study
  Country: BG (occurrence: BG)
  Receive Date: 20250515
  Receipt Date: 20250515
  Transmission Date: 20250717
  Serious: Yes (Death, Hospitalization)
  Sender: ABBVIE
  Company Number: BG-ABBVIE-6281924

PATIENT
  Age: 79 Year
  Sex: Male

DRUGS (1)
  1. FOSCARBIDOPA\FOSLEVODOPA [Suspect]
     Active Substance: FOSCARBIDOPA\FOSLEVODOPA
     Indication: Parkinson^s disease
     Route: 058
     Dates: start: 20250225, end: 20250510

REACTIONS (13)
  - Parkinson^s disease [Fatal]
  - Pyrexia [Unknown]
  - Micturition disorder [Not Recovered/Not Resolved]
  - Diarrhoea [Not Recovered/Not Resolved]
  - Hypotension [Not Recovered/Not Resolved]
  - Intestinal obstruction [Not Recovered/Not Resolved]
  - Abdominal distension [Recovered/Resolved]
  - Sensory disturbance [Unknown]
  - Therapeutic product effect incomplete [Unknown]
  - Mobility decreased [Unknown]
  - Hypotonia [Not Recovered/Not Resolved]
  - Diarrhoea [Recovered/Resolved]
  - Chills [Unknown]

NARRATIVE: CASE EVENT DATE: 20250101
